FAERS Safety Report 9140493 (Version 2)
Quarter: 2013Q1

REPORT INFORMATION
  Report Type: Spontaneous
  Country: US (occurrence: US)
  Receive Date: 20130305
  Receipt Date: 20130326
  Transmission Date: 20140127
  Serious: Yes (Other)
  Sender: FDA-Public Use
  Company Number: US-PFIZER INC-2013066462

PATIENT
  Age: 74 Year
  Sex: Male

DRUGS (6)
  1. DRISTAN [Suspect]
     Indication: HEADACHE
     Dosage: TAKES ONE IN AM, 1/2 PILL AT NOON, FULL ONE AT NIGHT AND 1/2 PILL AT BEDTIME
  2. DRISTAN [Suspect]
     Dosage: (1/2 DRISTAN COLD TABLET)
  3. ASPIRIN [Concomitant]
     Dosage: 81 MG, 1 MORNING AND 1 EVENING
  4. METOPROLOL [Concomitant]
     Dosage: 50 MG, 1 MORNING AND 1 EVENING
  5. PLAVIX [Concomitant]
     Dosage: 75 MG, UNK
  6. QUINAPRIL [Concomitant]
     Dosage: 20 MG, UNK

REACTIONS (1)
  - Cerebrovascular accident [Unknown]
